FAERS Safety Report 11923353 (Version 1)
Quarter: 2016Q1

REPORT INFORMATION
  Report Type: Spontaneous
  Country: CH (occurrence: CH)
  Receive Date: 20160118
  Receipt Date: 20160118
  Transmission Date: 20160526
  Serious: Yes (Hospitalization)
  Sender: FDA-Public Use
  Company Number: CH-ROCHE-1694300

PATIENT
  Age: 71 Year
  Sex: Female

DRUGS (7)
  1. ACIDUM FOLICUM [Concomitant]
     Active Substance: FOLIC ACID
     Route: 048
  2. SERESTA [Concomitant]
     Active Substance: OXAZEPAM
     Route: 048
  3. CONCOR [Concomitant]
     Active Substance: BISOPROLOL FUMARATE
     Route: 048
  4. XELODA [Suspect]
     Active Substance: CAPECITABINE
     Indication: ADENOCARCINOMA OF COLON
     Route: 048
     Dates: start: 20151030, end: 20151127
  5. IMODIUM [Concomitant]
     Active Substance: LOPERAMIDE HYDROCHLORIDE
     Route: 048
  6. TRESIBA [Concomitant]
     Active Substance: INSULIN DEGLUDEC
     Route: 058
  7. LEXOTANIL [Concomitant]
     Active Substance: BROMAZEPAM
     Route: 048

REACTIONS (4)
  - Abdominal pain [Recovered/Resolved]
  - Diarrhoea [Recovered/Resolved]
  - Nausea [Recovered/Resolved]
  - Blood electrolytes abnormal [Recovered/Resolved]

NARRATIVE: CASE EVENT DATE: 201511
